FAERS Safety Report 24306941 (Version 1)
Quarter: 2024Q3

REPORT INFORMATION
  Report Type: Report from Study
  Country: CA (occurrence: CA)
  Receive Date: 20240911
  Receipt Date: 20240911
  Transmission Date: 20241017
  Serious: Yes (Hospitalization)
  Sender: ABBVIE
  Company Number: CA-ABBVIE-5907057

PATIENT
  Sex: Female

DRUGS (11)
  1. BOTOX [Suspect]
     Active Substance: ONABOTULINUMTOXINA
     Indication: Migraine
     Dosage: TIME INTERVAL: AS NECESSARY
     Route: 030
  2. AMITRIPTYLINE [Concomitant]
     Active Substance: AMITRIPTYLINE
     Indication: Pain management
     Route: 048
  3. ANGELIQ [Concomitant]
     Active Substance: DROSPIRENONE\ESTRADIOL
     Indication: Blood oestrogen abnormal
     Route: 065
  4. Migraine [Concomitant]
     Indication: Neuralgia
     Dosage: TIME INTERVAL: 0.33333333 DAYS
     Route: 048
  5. LETROZOLE [Concomitant]
     Active Substance: LETROZOLE
     Indication: Blood oestrogen increased
     Dosage: AS NEEDED
     Route: 048
  6. HYDROMORPHONE [Concomitant]
     Active Substance: HYDROMORPHONE
     Indication: Product used for unknown indication
     Route: 048
  7. CONCERTA [Concomitant]
     Active Substance: METHYLPHENIDATE HYDROCHLORIDE
     Indication: Attention deficit hyperactivity disorder
     Route: 048
  8. LUPRON DEPOT [Suspect]
     Active Substance: LEUPROLIDE ACETATE
     Indication: Endometriosis
     Route: 030
  9. LUPRON DEPOT [Suspect]
     Active Substance: LEUPROLIDE ACETATE
     Indication: Endometriosis
     Route: 030
     Dates: start: 2023
  10. ORILISSA [Suspect]
     Active Substance: ELAGOLIX SODIUM
     Indication: Endometriosis
     Route: 048
     Dates: start: 2022, end: 202311
  11. TOPIRAMATE [Concomitant]
     Active Substance: TOPIRAMATE
     Indication: Migraine
     Route: 048

REACTIONS (5)
  - Drug ineffective [Recovered/Resolved]
  - Gait inability [Unknown]
  - Symptom recurrence [Unknown]
  - Condition aggravated [Unknown]
  - Pain [Unknown]
